FAERS Safety Report 7032111-9 (Version None)
Quarter: 2010Q4

REPORT INFORMATION
  Report Type: 
  Country: None (occurrence: None)
  Receive Date: 20101007
  Receipt Date: 20100923
  Transmission Date: 20110411
  Serious: Yes (Hospitalization)
  Sender: FDA-Public Use
  Company Number: IT-RANBAXY-2010RR-37092

PATIENT
  Age: 43 Year
  Sex: Female

DRUGS (17)
  1. ZIDOVUDINE [Suspect]
     Indication: HIV INFECTION
  2. LAMIVUDINE [Suspect]
     Indication: HIV INFECTION
     Dosage: UNK
     Dates: start: 20050901
  3. INDINAVIR [Suspect]
     Indication: HIV INFECTION
     Dosage: UNK
     Dates: end: 19980901
  4. SAQUINAVIR [Suspect]
     Indication: HIV INFECTION
     Dosage: UNK
     Dates: start: 19980901
  5. DIDANOSINE [Suspect]
     Indication: HIV INFECTION
  6. STAVUDINE [Suspect]
     Indication: HIV INFECTION
  7. NEVIRAPINE [Suspect]
     Indication: HIV INFECTION
  8. EFAVIRENZ [Suspect]
     Indication: HIV INFECTION
  9. ABACAVIR SULPHATE [Suspect]
     Indication: HIV INFECTION
     Dosage: UNK
     Dates: start: 20021001
  10. ABACAVIR SULPHATE [Suspect]
     Dosage: UNK
     Dates: start: 20050901
  11. FOSAMPRENAVIR/RITONAVIR [Suspect]
     Indication: HIV INFECTION
     Dosage: UNK
     Dates: start: 20050901
  12. TENOFOVIR DISOPROXIL FUMARATE [Suspect]
     Indication: HIV INFECTION
     Dosage: UNK
     Dates: start: 20080301
  13. EMTRICITABINE [Suspect]
     Indication: HIV INFECTION
     Dosage: UNK
     Dates: start: 20080301
  14. DARUNAVIR/RITONAVIR [Suspect]
     Indication: HIV INFECTION
     Dosage: UNK
     Dates: start: 20080301
  15. PEGINTERFERON ALFA-2A [Suspect]
     Dosage: UNK MG, UNK
  16. RIBAVIRIN [Suspect]
     Dosage: 800 MG, UNK
  17. RALTEGRAVIR [Concomitant]
     Indication: HIV INFECTION

REACTIONS (7)
  - ASTHENIA [None]
  - DECREASED APPETITE [None]
  - HEPATOMEGALY [None]
  - HEPATOTOXICITY [None]
  - NAUSEA [None]
  - NEPHROLITHIASIS [None]
  - VOMITING [None]
